FAERS Safety Report 18089481 (Version 2)
Quarter: 2020Q3

REPORT INFORMATION
  Report Type: Spontaneous
  Country: US (occurrence: US)
  Receive Date: 20200728
  Receipt Date: 20200728
  Transmission Date: 20201103
  Serious: Yes (Hospitalization, Other)
  Sender: FDA-Public Use
  Company Number: US-OSMOTICA_PHARMACEUTICAL_US_LLC-POI0573202000150

PATIENT
  Age: 63 Year
  Sex: Female
  Weight: 74.91 kg

DRUGS (10)
  1. DIVIGEL [Suspect]
     Active Substance: ESTRADIOL
     Indication: NIGHT SWEATS
  2. PROVERA [Concomitant]
     Active Substance: MEDROXYPROGESTERONE ACETATE
     Indication: VAGINAL HAEMORRHAGE
     Dates: start: 201809, end: 201812
  3. BIEST [Concomitant]
     Active Substance: ESTRADIOL\ESTRIOL
     Indication: VAGINAL HAEMORRHAGE
     Route: 062
     Dates: start: 201904, end: 201904
  4. DEPO?PROVERA [Concomitant]
     Active Substance: MEDROXYPROGESTERONE ACETATE
     Indication: VAGINAL HAEMORRHAGE
     Route: 030
     Dates: start: 201905, end: 201911
  5. ESTRADIOL TRANSDERMAL SYSTEM [Concomitant]
     Active Substance: ESTRADIOL
     Indication: HOT FLUSH
     Dosage: 0.75 MG PER 24HR
     Route: 062
     Dates: start: 201810, end: 201810
  6. IMMVEXY VAGINAL SUPPOSITORIES [Concomitant]
     Indication: VAGINAL HAEMORRHAGE
     Route: 067
     Dates: start: 201902
  7. DHEA [Concomitant]
     Active Substance: PRASTERONE
     Indication: VAGINAL HAEMORRHAGE
     Dates: start: 201904, end: 201904
  8. DIVIGEL [Suspect]
     Active Substance: ESTRADIOL
     Indication: HOT FLUSH
     Route: 062
     Dates: start: 201809
  9. PROVERA [Concomitant]
     Active Substance: MEDROXYPROGESTERONE ACETATE
     Dates: start: 201812, end: 201905
  10. PROGESTERONE. [Concomitant]
     Active Substance: PROGESTERONE
     Indication: VAGINAL HAEMORRHAGE
     Dates: start: 201904, end: 201904

REACTIONS (3)
  - Drug ineffective [Recovered/Resolved]
  - Vaginal haemorrhage [Recovered/Resolved]
  - Anaemia [Unknown]

NARRATIVE: CASE EVENT DATE: 201809
